FAERS Safety Report 5947146-4 (Version None)
Quarter: 2008Q4

REPORT INFORMATION
  Report Type: 
  Country: None (occurrence: None)
  Receive Date: 20081110
  Receipt Date: 20081103
  Transmission Date: 20090506
  Serious: Yes (Hospitalization, Other)
  Sender: FDA-Public Use
  Company Number: US-ABBOTT-08P-163-0485211-00

PATIENT
  Sex: Female
  Weight: 85.806 kg

DRUGS (7)
  1. HUMIRA [Suspect]
     Indication: RHEUMATOID ARTHRITIS
     Route: 058
     Dates: start: 20081001, end: 20081026
  2. METHOTREXATE [Concomitant]
     Indication: RHEUMATOID ARTHRITIS
     Dosage: 8MG WEEKLY
     Route: 048
  3. INSULIN GLARGINE [Concomitant]
     Indication: DIABETES MELLITUS
     Dosage: 18 UNIT AT BEDTIME
     Route: 058
  4. INSULIN HUMAN [Concomitant]
     Indication: DIABETES MELLITUS
     Dosage: 1 UNIT DAILY; SLIDING SCALE
     Route: 058
  5. METFORMIN HCL [Concomitant]
     Indication: DIABETES MELLITUS
     Route: 048
  6. VERAPAMIL [Concomitant]
     Indication: HYPERTENSION
     Route: 048
  7. DYAZIDE [Concomitant]
     Indication: DRUG USE FOR UNKNOWN INDICATION
     Dosage: 75/50; 75 MG DAILY
     Route: 048

REACTIONS (5)
  - AMNESIA [None]
  - BLOOD GLUCOSE INCREASED [None]
  - BLOOD PRESSURE INCREASED [None]
  - CONVULSION [None]
  - DISORIENTATION [None]
